FAERS Safety Report 7763608-1 (Version None)
Quarter: 2011Q3

REPORT INFORMATION
  Report Type: 
  Country: None (occurrence: None)
  Receive Date: 20110921
  Receipt Date: 20110728
  Transmission Date: 20111222
  Serious: Yes (Hospitalization)
  Sender: FDA-Public Use
  Company Number: PHEH2011US04350

PATIENT
  Sex: Female
  Weight: 74 kg

DRUGS (1)
  1. EXJADE [Suspect]
     Indication: HAEMOCHROMATOSIS
     Dosage: 1500 MG, DAILY
     Route: 048
     Dates: start: 20110506

REACTIONS (1)
  - PAIN [None]
